FAERS Safety Report 23501371 (Version 5)
Quarter: 2024Q3

REPORT INFORMATION
  Report Type: Spontaneous
  Country: US (occurrence: US)
  Receive Date: 20240208
  Receipt Date: 20240821
  Transmission Date: 20241016
  Serious: Yes (Hospitalization)
  Sender: SANOFI AVENTIS
  Company Number: US-SA-SAC20240207000609

PATIENT
  Age: 57 Year
  Sex: Male

DRUGS (1)
  1. REZUROCK [Suspect]
     Active Substance: BELUMOSUDIL
     Indication: Chronic graft versus host disease
     Dosage: 200 MG, BID
     Route: 048
     Dates: start: 20240111

REACTIONS (11)
  - Dehydration [Unknown]
  - Viral infection [Unknown]
  - Influenza [Unknown]
  - Pruritus [Unknown]
  - Decreased activity [Unknown]
  - Impaired quality of life [Unknown]
  - Myalgia [Unknown]
  - Fatigue [Unknown]
  - Arthralgia [Unknown]
  - Vomiting [Unknown]
  - Inappropriate schedule of product administration [Unknown]
